FAERS Safety Report 8264697-0 (Version None)
Quarter: 2012Q2

REPORT INFORMATION
  Report Type: 
  Country: None (occurrence: None)
  Receive Date: 20120404
  Receipt Date: 20120326
  Transmission Date: 20120825
  Serious: Yes (Death, Hospitalization, Other)
  Sender: FDA-Public Use
  Company Number: AUR-APL-2012-01642

PATIENT
  Age: 69 Year
  Sex: Male

DRUGS (9)
  1. CLOPIDOGREL [Concomitant]
  2. SERTRALINE HYDROCHLORIDE [Concomitant]
  3. GABAPENTIN [Concomitant]
  4. GLIPIZIDE [Concomitant]
  5. ROSUVASTATIN [Concomitant]
  6. LISINOPRIL [Concomitant]
  7. METFORMIN HCL [Suspect]
     Indication: PRODUCT USED FOR UNKNOWN INDICATION
  8. METOPROLOL TARTRATE [Concomitant]
  9. OMEPRAZOLE [Concomitant]

REACTIONS (12)
  - TOXICITY TO VARIOUS AGENTS [None]
  - BLOOD GLUCOSE INCREASED [None]
  - SEPSIS [None]
  - GENERAL PHYSICAL HEALTH DETERIORATION [None]
  - GASTROINTESTINAL SOUNDS ABNORMAL [None]
  - LUNG INFILTRATION [None]
  - LACTIC ACIDOSIS [None]
  - OCCULT BLOOD POSITIVE [None]
  - FAECALOMA [None]
  - BLOOD CREATININE INCREASED [None]
  - HYPERHIDROSIS [None]
  - INTESTINAL DILATATION [None]
